FAERS Safety Report 8141307-4 (Version None)
Quarter: 2012Q1

REPORT INFORMATION
  Report Type: 
  Country: None (occurrence: None)
  Receive Date: 20120216
  Receipt Date: 20120206
  Transmission Date: 20120608
  Serious: Yes (Hospitalization, Other)
  Sender: FDA-Public Use
  Company Number: US-ELI_LILLY_AND_COMPANY-US200910006022

PATIENT
  Sex: Male

DRUGS (3)
  1. LEXAPRO [Concomitant]
  2. ZYPREXA [Suspect]
     Dosage: 1 D/F, UNK
  3. ASPIRIN [Concomitant]

REACTIONS (14)
  - HAEMATURIA [None]
  - HAEMORRHOIDS [None]
  - GASTRITIS [None]
  - HYPERLIPIDAEMIA [None]
  - HAEMOPTYSIS [None]
  - RECTAL HAEMORRHAGE [None]
  - DIVERTICULUM [None]
  - NEPHROLITHIASIS [None]
  - GASTROINTESTINAL HAEMORRHAGE [None]
  - CORONARY ARTERY DISEASE [None]
  - TYPE 2 DIABETES MELLITUS [None]
  - CARDIAC FAILURE [None]
  - PNEUMONIA [None]
  - HYPERTENSION [None]
